FAERS Safety Report 7635460-6 (Version None)
Quarter: 2011Q3

REPORT INFORMATION
  Report Type: 
  Country: None (occurrence: None)
  Receive Date: 20110726
  Receipt Date: 20110726
  Transmission Date: 20111222
  Serious: Yes (Other)
  Sender: FDA-Public Use
  Company Number: None

PATIENT
  Age: 48 Year
  Sex: Male
  Weight: 99.79 kg

DRUGS (7)
  1. NEXIUM [Concomitant]
     Route: 048
  2. MISOPROSTOL [Suspect]
     Indication: GASTROOESOPHAGEAL REFLUX DISEASE
     Dosage: 200 MCG
     Route: 048
     Dates: start: 20110710, end: 20110715
  3. ADVAIR DISKUS 100/50 [Concomitant]
  4. NIASPAN [Concomitant]
     Route: 048
  5. SINGULAIR [Concomitant]
     Route: 048
  6. ISONIAZID [Concomitant]
     Route: 048
  7. SYNTHROID [Concomitant]
     Route: 048

REACTIONS (2)
  - NAUSEA [None]
  - PRODUCT ODOUR ABNORMAL [None]
